FAERS Safety Report 5179766-1 (Version None)
Quarter: 2006Q4

REPORT INFORMATION
  Report Type: 
  Country: None (occurrence: None)
  Receive Date: 20061212
  Receipt Date: 20061129
  Transmission Date: 20070319
  Serious: Yes (Other)
  Sender: FDA-Public Use
  Company Number: 2006135876

PATIENT
  Age: 73 Year
  Sex: 0
  Weight: 66 kg

DRUGS (7)
  1. ZYVOX [Suspect]
     Indication: INFECTIVE SPONDYLITIS
     Dosage: 1200 MG (600 MG, 2 IN 1 D), ORAL
     Route: 048
     Dates: start: 20061024, end: 20061101
  2. CLINORIL [Concomitant]
  3. PAXIL [Concomitant]
  4. LANSOPRAZOLE [Concomitant]
  5. MUCOSTA (REBAMIPIDE) [Concomitant]
  6. PURSENNID (SENNA LEAF) [Concomitant]
  7. ALLOPURINOL [Concomitant]

REACTIONS (4)
  - CATARACT [None]
  - GLAUCOMA [None]
  - OPTIC NERVE DISORDER [None]
  - RASH [None]
